FAERS Safety Report 8916198 (Version 1)
Quarter: 2012Q4

REPORT INFORMATION
  Report Type: 
  Country: US (occurrence: US)
  Receive Date: 20121120
  Receipt Date: 20121120
  Transmission Date: 20130627
  Serious: Yes (Hospitalization, Other)
  Sender: FDA-Public Use
  Company Number: US-ELI_LILLY_AND_COMPANY-US201211002593

PATIENT
  Sex: Female

DRUGS (3)
  1. CYMBALTA [Suspect]
     Indication: MUSCULOSKELETAL PAIN
     Dosage: 30 mg, UNK
     Dates: start: 201209
  2. CYMBALTA [Interacting]
     Dosage: 60 mg, UNK
  3. ALEVE [Concomitant]
     Dosage: UNK, 4 tablets each morning

REACTIONS (3)
  - Pulmonary thrombosis [Unknown]
  - Chest pain [Unknown]
  - Drug interaction [Unknown]
